FAERS Safety Report 4764242-8 (Version None)
Quarter: 2005Q3

REPORT INFORMATION
  Report Type: 
  Country: None (occurrence: None)
  Receive Date: 20050906
  Receipt Date: 20050819
  Transmission Date: 20060218
  Serious: Yes (Hospitalization)
  Sender: FDA-Public Use
  Company Number: USA0508104295

PATIENT
  Sex: Female

DRUGS (4)
  1. FORTEO [Suspect]
     Dosage: 20 UG/1 DAY
     Dates: start: 20040201
  2. MYSOLINE [Concomitant]
  3. NEURONTIN [Concomitant]
  4. REQUIP [Concomitant]

REACTIONS (3)
  - CHEST PAIN [None]
  - CHOLECYSTITIS [None]
  - PHARMACEUTICAL PRODUCT COMPLAINT [None]
